FAERS Safety Report 7649572-4 (Version None)
Quarter: 2011Q3

REPORT INFORMATION
  Report Type: 
  Country: None (occurrence: None)
  Receive Date: 20110727
  Receipt Date: 20110714
  Transmission Date: 20111222
  Serious: Yes (Hospitalization, Other)
  Sender: FDA-Public Use
  Company Number: IMP_05410_2011

PATIENT
  Age: 11 Month
  Sex: Male
  Weight: 12 kg

DRUGS (2)
  1. BUPROPION HCL [Suspect]
     Indication: PRODUCT USED FOR UNKNOWN INDICATION
     Dosage: ONCE
  2. CHARCOAL ACTIVATED [Suspect]
     Indication: PRODUCT USED FOR UNKNOWN INDICATION
     Dosage: ONCE

REACTIONS (22)
  - HYPOXIA [None]
  - LUNG INFILTRATION [None]
  - ACCIDENTAL DRUG INTAKE BY CHILD [None]
  - VOMITING [None]
  - CEREBRAL DISORDER [None]
  - RESPIRATORY FAILURE [None]
  - BLOOD PRESSURE SYSTOLIC INCREASED [None]
  - SINUS TACHYCARDIA [None]
  - METABOLIC ACIDOSIS [None]
  - BALANCE DISORDER [None]
  - DEPRESSED LEVEL OF CONSCIOUSNESS [None]
  - HYPERGLYCAEMIA [None]
  - VENTRICULAR EXTRASYSTOLES [None]
  - DRUG ADMINISTRATION ERROR [None]
  - GRAND MAL CONVULSION [None]
  - ASPIRATION [None]
  - PUPIL FIXED [None]
  - HYPOTENSION [None]
  - OVERDOSE [None]
  - POOR PERIPHERAL CIRCULATION [None]
  - VENTRICULAR TACHYCARDIA [None]
  - ELECTROCARDIOGRAM QT PROLONGED [None]
